FAERS Safety Report 4402359-8 (Version None)
Quarter: 2004Q3

REPORT INFORMATION
  Report Type: 
  Country: None (occurrence: None)
  Receive Date: 20040716
  Receipt Date: 20040713
  Transmission Date: 20050211
  Serious: Yes (Death, Hospitalization)
  Sender: FDA-Public Use
  Company Number: 04-06-0855

PATIENT
  Age: 48 Year
  Sex: Male

DRUGS (6)
  1. CLOZAPINE [Suspect]
     Indication: SCHIZOPHRENIA
     Dosage: 350 MG/DAY ORAL
     Route: 048
     Dates: start: 19991201, end: 20040501
  2. ATIVAN [Concomitant]
  3. DEPAKOTE [Concomitant]
  4. ZYPREXA [Concomitant]
  5. ZOLOFT [Concomitant]
  6. SYMMETREL [Concomitant]

REACTIONS (2)
  - DYSPHAGIA [None]
  - PNEUMONIA [None]
